FAERS Safety Report 5688800-1 (Version None)
Quarter: 2008Q1

REPORT INFORMATION
  Report Type: 
  Country: None (occurrence: None)
  Receive Date: 20080331
  Receipt Date: 20080326
  Transmission Date: 20080703
  Serious: Yes (Hospitalization)
  Sender: FDA-Public Use
  Company Number: FR-BRISTOL-MYERS SQUIBB COMPANY-14128953

PATIENT
  Age: 80 Year
  Sex: Male

DRUGS (9)
  1. VASTEN TABS 10 MG [Suspect]
     Route: 048
     Dates: end: 20080123
  2. SERETIDE [Suspect]
     Indication: CHRONIC OBSTRUCTIVE PULMONARY DISEASE
     Dosage: IRREGULAR AEROSOL SOLUTION. 1 DOSAGEFORM = 500 MCG/50 MCG
     Route: 055
     Dates: end: 20071101
  3. FLECAINIDE ACETATE [Suspect]
     Indication: ATRIAL FIBRILLATION
     Dosage: 01-JAN-2007 TO MAR-2007: 150MG/D  MAR-2007 TO 23-JAN-2008: 200MG/D
     Route: 048
     Dates: start: 20070101, end: 20080123
  4. PREVISCAN [Concomitant]
     Indication: ATRIAL FIBRILLATION
     Dosage: FORMULATION: TABLET
     Route: 048
  5. COVERSYL [Concomitant]
     Indication: HYPERTENSION
  6. LASILIX [Concomitant]
     Indication: HYPERTENSION
     Dates: start: 20080101, end: 20080101
  7. LOXEN [Concomitant]
     Indication: HYPERTENSION
     Dates: end: 20080101
  8. STAGID [Concomitant]
     Indication: METABOLIC SYNDROME
     Dates: start: 20080101, end: 20080101
  9. MOPRAL [Concomitant]
     Dates: start: 20080101, end: 20080101

REACTIONS (2)
  - INTERSTITIAL LUNG DISEASE [None]
  - RESPIRATORY FAILURE [None]
